FAERS Safety Report 20617293 (Version 2)
Quarter: 2022Q2

REPORT INFORMATION
  Report Type: Spontaneous
  Country: FR (occurrence: FR)
  Receive Date: 20220321
  Receipt Date: 20220506
  Transmission Date: 20220721
  Serious: Yes (Other)
  Sender: FDA-Public Use
  Company Number: FR-NOVARTISPH-NVSC2022FR063459

PATIENT
  Age: 50 Year
  Sex: Female
  Weight: 45 kg

DRUGS (9)
  1. LUTATHERA [Suspect]
     Active Substance: LUTETIUM OXODOTREOTIDE LU-177
     Indication: Small intestine neuroendocrine tumour
     Dosage: UNK
     Route: 042
     Dates: start: 20160712, end: 2017
  2. LUTATHERA [Suspect]
     Active Substance: LUTETIUM OXODOTREOTIDE LU-177
     Dosage: 7254 MBQ (370 MBQ/ML)
     Route: 042
     Dates: start: 20220110, end: 20220110
  3. LUTATHERA [Suspect]
     Active Substance: LUTETIUM OXODOTREOTIDE LU-177
     Dosage: 3700 MBQ (370 MBQ/ML)
     Route: 042
     Dates: start: 20220421, end: 20220421
  4. ARGININE\LYSINE [Suspect]
     Active Substance: ARGININE\LYSINE
     Indication: Renal disorder prophylaxis
     Dosage: 1 L (25/25 G)
     Route: 042
     Dates: start: 20220421, end: 20220421
  5. LANREOTIDE ACETATE [Concomitant]
     Active Substance: LANREOTIDE ACETATE
     Indication: Prophylaxis
     Dosage: 120 MG, QMO (PROLONGED-RELEASE)
     Route: 058
  6. PHLOROGLUCINOL [Concomitant]
     Active Substance: PHLOROGLUCINOL
     Indication: Prophylaxis
     Dosage: 80 MG, BID (MAX 2 DOSES PER DAY)
     Route: 048
  7. LEVOTHYROXINE SODIUM [Concomitant]
     Active Substance: LEVOTHYROXINE SODIUM
     Indication: Prophylaxis
     Dosage: 100 UG (IN THE MORNING)
     Route: 048
  8. ABSTRAL [Concomitant]
     Active Substance: FENTANYL CITRATE
     Indication: Prophylaxis
     Dosage: 300 UG (4/24 H IN CASE OF PAIN)
     Route: 048
  9. HYDROXYZINE [Concomitant]
     Active Substance: HYDROXYZINE HYDROCHLORIDE
     Indication: Prophylaxis
     Dosage: 25 MG (4/24 H IN CASE OF ANXIETY)
     Route: 048

REACTIONS (9)
  - Neutropenia [Unknown]
  - Liver injury [Unknown]
  - Flushing [Recovered/Resolved]
  - Nausea [Recovered/Resolved]
  - Headache [Recovered/Resolved]
  - Sensory disturbance [Unknown]
  - Respiratory disorder [Unknown]
  - Dyspnoea [Unknown]
  - Intentional product use issue [Unknown]

NARRATIVE: CASE EVENT DATE: 20220110
